FAERS Safety Report 7917618-1 (Version None)
Quarter: 2011Q4

REPORT INFORMATION
  Report Type: 
  Country: None (occurrence: None)
  Receive Date: 20111116
  Receipt Date: 20111107
  Transmission Date: 20120403
  Serious: Yes (Other)
  Sender: FDA-Public Use
  Company Number: CA-ELI_LILLY_AND_COMPANY-CA201111001918

PATIENT
  Sex: Female

DRUGS (6)
  1. ZYPREXA [Suspect]
     Indication: SCHIZOPHRENIA, PARANOID TYPE
     Dosage: 5 MG, EACH EVENING
     Route: 048
  2. CELEXA [Concomitant]
  3. RISPERDAL [Concomitant]
  4. ZYPREXA [Suspect]
     Indication: SCHIZOPHRENIA, PARANOID TYPE
     Dosage: 10 MG, EACH EVENING
     Route: 048
     Dates: start: 20011212
  5. FERROUS GLUCONATE [Concomitant]
  6. ZYPREXA [Suspect]
     Dosage: 2.5 MG, EACH EVENING
     Route: 048

REACTIONS (8)
  - LIVER FUNCTION TEST ABNORMAL [None]
  - BLOOD GLUCOSE INCREASED [None]
  - LIVER INJURY [None]
  - LIPIDS INCREASED [None]
  - HAEMOGLOBIN DECREASED [None]
  - NEPHROPATHY [None]
  - HYPOCHROMASIA [None]
  - DIABETES MELLITUS [None]
